FAERS Safety Report 6630576-5 (Version None)
Quarter: 2010Q1

REPORT INFORMATION
  Report Type: 
  Country: None (occurrence: None)
  Receive Date: 20100311
  Receipt Date: 20090629
  Transmission Date: 20100710
  Serious: No
  Sender: FDA-Public Use
  Company Number: US-BIOGENIDEC-2009BI015451

PATIENT
  Sex: Female

DRUGS (5)
  1. AVONEX [Suspect]
     Indication: MULTIPLE SCLEROSIS
     Route: 030
     Dates: start: 20020101, end: 20030101
  2. AVONEX [Suspect]
     Route: 030
     Dates: start: 20030101
  3. PHENERGAN HCL [Concomitant]
     Indication: NAUSEA
  4. PHENERGAN HCL [Concomitant]
  5. PHENERGAN HCL [Concomitant]
     Indication: VOMITING

REACTIONS (6)
  - BLOOD POTASSIUM DECREASED [None]
  - NAUSEA [None]
  - PAIN [None]
  - THYROID DISORDER [None]
  - VOMITING [None]
  - WEIGHT INCREASED [None]
